FAERS Safety Report 12389315 (Version 2)
Quarter: 2016Q3

REPORT INFORMATION
  Report Type: Report from Study
  Country: VE (occurrence: VE)
  Receive Date: 20160520
  Receipt Date: 20160707
  Transmission Date: 20161109
  Serious: Yes (Hospitalization, Other)
  Sender: FDA-Public Use
  Company Number: PHHY2016VE069512

PATIENT
  Sex: Male

DRUGS (8)
  1. EXJADE [Suspect]
     Active Substance: DEFERASIROX
     Dosage: 2000 MG, QD
     Route: 048
     Dates: start: 20160608
  2. TEGRETOL [Suspect]
     Active Substance: CARBAMAZEPINE
     Dosage: 800 MG, BID
     Route: 065
  3. EXJADE [Suspect]
     Active Substance: DEFERASIROX
     Indication: SICKLE CELL ANAEMIA
     Dosage: 1500 MG, QD
     Route: 048
  4. TEGRETOL [Suspect]
     Active Substance: CARBAMAZEPINE
     Dosage: 200 MG, QD
     Route: 048
  5. HYDREA [Concomitant]
     Active Substance: HYDROXYUREA
     Indication: SICKLE CELL ANAEMIA
     Dosage: UNK UNK, QD
     Route: 065
  6. TEGRETOL [Suspect]
     Active Substance: CARBAMAZEPINE
     Indication: SEIZURE
     Dosage: 400 MG, QD
     Route: 048
  7. TEGRETOL [Suspect]
     Active Substance: CARBAMAZEPINE
     Dosage: 400 MG, QD
     Route: 048
  8. ACIDO FOLICO//FOLIC ACID [Concomitant]
     Active Substance: FOLIC ACID
     Indication: HYPOVITAMINOSIS
     Dosage: 10 MG, QD
     Route: 065

REACTIONS (13)
  - Pain [Unknown]
  - Pneumonia [Unknown]
  - Musculoskeletal pain [Unknown]
  - Vascular occlusion [Unknown]
  - Blood iron increased [Unknown]
  - Pulmonary thrombosis [Unknown]
  - Expired product administered [Unknown]
  - Sickle cell anaemia with crisis [Recovering/Resolving]
  - Arthralgia [Recovering/Resolving]
  - Seizure [Unknown]
  - Inflammation [Unknown]
  - Abasia [Unknown]
  - Cardiomegaly [Unknown]
